FAERS Safety Report 4367830-6 (Version None)
Quarter: 2004Q2

REPORT INFORMATION
  Report Type: 
  Country: None (occurrence: None)
  Receive Date: 20040527
  Receipt Date: 20040329
  Transmission Date: 20050107
  Serious: No
  Sender: FDA-Public Use
  Company Number: 205539

PATIENT
  Age: 46 Year
  Sex: Male
  Weight: 115.6 kg

DRUGS (8)
  1. RAPTIVA [Suspect]
     Indication: PSORIASIS
     Dosage: 0.8ML, 1/WEEK, SUBCUTANEOUS
     Route: 058
     Dates: start: 20040315
  2. NEURONTIN [Concomitant]
  3. DETROL [Concomitant]
  4. ADDERALL (DEXTROAMPHETAMINE SULFATE, DEXTROAMPHETAMINE SACCHARATE, AMP [Concomitant]
  5. ZESTRIL [Concomitant]
  6. CELEXA [Concomitant]
  7. VIOXX [Concomitant]
  8. AVONEX [Concomitant]

REACTIONS (1)
  - APHTHOUS STOMATITIS [None]
